FAERS Safety Report 10429812 (Version 1)
Quarter: 2014Q3

REPORT INFORMATION
  Report Type: Spontaneous
  Country: US (occurrence: None)
  Receive Date: 20140902
  Receipt Date: 20140902
  Transmission Date: 20150326
  Serious: No
  Sender: FDA-Public Use
  Company Number: None

PATIENT
  Age: 68 Year
  Sex: Male
  Weight: 61.24 kg

DRUGS (4)
  1. OSMOPREP [Suspect]
     Active Substance: SODIUM PHOSPHATE, DIBASIC, ANHYDROUS\SODIUM PHOSPHATE, MONOBASIC, MONOHYDRATE
     Indication: COLONOSCOPY
     Dosage: 4 PILLS EVERY 15 MINUTES 4X ONLY MOUTH
     Route: 048
     Dates: start: 20110303, end: 20110303
  2. VITAMIN B12 [Concomitant]
     Active Substance: CYANOCOBALAMIN
  3. MULTIVITAMIN [Concomitant]
     Active Substance: VITAMINS
  4. NEUROCEL [Concomitant]

REACTIONS (2)
  - Malaise [None]
  - Neuropathy peripheral [None]
